FAERS Safety Report 21969346 (Version 1)
Quarter: 2023Q1

REPORT INFORMATION
  Report Type: Spontaneous
  Country: US (occurrence: None)
  Receive Date: 20230207
  Receipt Date: 20230207
  Transmission Date: 20230418
  Serious: Yes (Life-Threatening, Hospitalization)
  Sender: FDA-Public Use
  Company Number: None

PATIENT
  Age: 84 Year
  Sex: Male
  Weight: 83.7 kg

DRUGS (2)
  1. WARFARIN [Suspect]
     Active Substance: WARFARIN
     Indication: Deep vein thrombosis
     Dosage: FREQUENCY : DAILY;?
     Route: 048
  2. BRILINTA [Concomitant]
     Active Substance: TICAGRELOR

REACTIONS (5)
  - Gastrointestinal haemorrhage [None]
  - Dyspnoea [None]
  - International normalised ratio increased [None]
  - Haemoglobin decreased [None]
  - Chest pain [None]

NARRATIVE: CASE EVENT DATE: 20230127
